FAERS Safety Report 26132168 (Version 4)
Quarter: 2025Q4

REPORT INFORMATION
  Report Type: Report from Study
  Country: EU (occurrence: EU)
  Receive Date: 20251208
  Receipt Date: 20251224
  Transmission Date: 20260119
  Serious: Yes (Other)
  Sender: NOVARTIS
  Company Number: EU-002147023-NVSC2024DE122339

PATIENT
  Sex: Female

DRUGS (4)
  1. BEOVU [Suspect]
     Active Substance: BROLUCIZUMAB-DBLL
     Indication: Neovascular age-related macular degeneration
     Dosage: 6 MG (RIGHT EYE) (ONCE), PRE-FILLED SYRINGE 120 MG/ ML,0.05 ML
     Route: 031
     Dates: start: 20231005, end: 20231005
  2. BEOVU [Suspect]
     Active Substance: BROLUCIZUMAB-DBLL
     Dosage: 6 MG (RIGHT EYE)(ONCE) PRE-FILLED SYRINGE,120 MG/ ML,0.05 ML
     Route: 031
     Dates: start: 20231102, end: 20231102
  3. BEOVU [Suspect]
     Active Substance: BROLUCIZUMAB-DBLL
     Dosage: 6 MG (RIGHT EYE)(ONCE),PRE-FILLED SYRINGE 120 MG/ ML,0.05 ML
     Route: 031
     Dates: start: 20231130, end: 20231130
  4. BEOVU [Suspect]
     Active Substance: BROLUCIZUMAB-DBLL
     Dosage: 6 MG (RIGHT EYE),PRE-FILLED SYRINGE 120 MG/ ML,0.05 ML
     Route: 031
     Dates: start: 20240111, end: 20240111

REACTIONS (3)
  - Macular oedema [Recovered/Resolved]
  - Drug ineffective [Unknown]
  - Off label use [Unknown]

NARRATIVE: CASE EVENT DATE: 20240424
